FAERS Safety Report 6119653-5 (Version None)
Quarter: 2009Q1

REPORT INFORMATION
  Report Type: 
  Country: None (occurrence: None)
  Receive Date: 20090316
  Receipt Date: 20090309
  Transmission Date: 20090719
  Serious: Yes (Other)
  Sender: FDA-Public Use
  Company Number: US-AVENTIS-200911925US

PATIENT
  Age: 71 Year
  Sex: Female

DRUGS (4)
  1. LANTUS [Suspect]
     Route: 058
     Dates: start: 20080701
  2. APIDRA [Suspect]
     Dosage: DOSE: 4 TO 5 UNITS IN THE MORNING, 8 UNITS AT NOON AND 10 UNITS AT DINNER
     Route: 051
     Dates: start: 20080701
  3. OPTICLIK GREY [Suspect]
     Dates: start: 20080701
  4. OPTICLIK (INSULIN INJECTION PEN) [Suspect]
     Dates: start: 20080701

REACTIONS (5)
  - ABDOMINAL PAIN UPPER [None]
  - BLOOD GLUCOSE INCREASED [None]
  - DYSPNOEA [None]
  - FATIGUE [None]
  - MYOCARDIAL INFARCTION [None]
